FAERS Safety Report 9994593 (Version 1)
Quarter: 2014Q1

REPORT INFORMATION
  Report Type: Spontaneous
  Country: AT (occurrence: AT)
  Receive Date: 20140311
  Receipt Date: 20140311
  Transmission Date: 20141002
  Serious: Yes (Hospitalization)
  Sender: FDA-Public Use
  Company Number: AT-ABBVIE-14P-009-1210516-00

PATIENT
  Age: 47 Year
  Sex: Male

DRUGS (6)
  1. DEPAKINE CHRONO [Suspect]
     Indication: PRODUCT USED FOR UNKNOWN INDICATION
     Dates: start: 20131002, end: 20131016
  2. LORAZEPAM [Suspect]
     Indication: PRODUCT USED FOR UNKNOWN INDICATION
     Dates: start: 20131002, end: 20131021
  3. LORAZEPAM [Suspect]
     Dates: start: 20131022, end: 20131105
  4. ABILIFY [Suspect]
     Indication: PRODUCT USED FOR UNKNOWN INDICATION
     Dates: start: 20131003, end: 20131010
  5. SEROQUEL [Suspect]
     Indication: PRODUCT USED FOR UNKNOWN INDICATION
     Dosage: EXTENDED RELEASE
     Route: 048
     Dates: start: 20131004, end: 20131009
  6. SEROQUEL [Suspect]
     Dosage: EXTENDED RELEASE
     Route: 048
     Dates: start: 20131009, end: 20131013

REACTIONS (1)
  - Delirium [Recovered/Resolved]
